FAERS Safety Report 23521396 (Version 2)
Quarter: 2024Q2

REPORT INFORMATION
  Report Type: Spontaneous
  Country: CA (occurrence: CA)
  Receive Date: 20240214
  Receipt Date: 20240528
  Transmission Date: 20240716
  Serious: Yes (Death, Hospitalization)
  Sender: FDA-Public Use
  Company Number: CA-HLS-202400430

PATIENT
  Age: 71 Year
  Sex: Male
  Weight: 66 kg

DRUGS (1)
  1. CLOZAPINE [Suspect]
     Active Substance: CLOZAPINE
     Indication: Product used for unknown indication
     Dosage: TABLETS DOSAGE FORM
     Route: 065

REACTIONS (2)
  - Chronic obstructive pulmonary disease [Fatal]
  - Death [Fatal]
